FAERS Safety Report 7511526-6 (Version None)
Quarter: 2011Q2

REPORT INFORMATION
  Report Type: 
  Country: None (occurrence: None)
  Receive Date: 20110531
  Receipt Date: 20110526
  Transmission Date: 20111010
  Serious: Yes (Other)
  Sender: FDA-Public Use
  Company Number: GB-B.I. PHARMACEUTICALS,INC./RIDGEFIELD-2011-UK-00396UK

PATIENT
  Age: 80 Year
  Sex: Female

DRUGS (7)
  1. SPIRIVA [Suspect]
  2. CARBOCISTEINE [Concomitant]
  3. ALBUTEROL [Concomitant]
     Indication: ASTHMA
  4. LORATADINE [Concomitant]
  5. ATROVENT [Concomitant]
  6. SINGULAIR [Concomitant]
  7. SYMBICORT [Concomitant]

REACTIONS (8)
  - EXTRASYSTOLES [None]
  - HEART RATE IRREGULAR [None]
  - ARRHYTHMIA [None]
  - DYSPNOEA [None]
  - HEART RATE INCREASED [None]
  - PALPITATIONS [None]
  - INTRAOCULAR PRESSURE INCREASED [None]
  - OCULAR HYPERTENSION [None]
